FAERS Safety Report 11389211 (Version 2)
Quarter: 2015Q3

REPORT INFORMATION
  Report Type: Spontaneous
  Country: US (occurrence: US)
  Receive Date: 20150817
  Receipt Date: 20150827
  Transmission Date: 20151125
  Serious: No
  Sender: FDA-Public Use
  Company Number: US-GLAXOSMITHKLINE-US2015GSK091685

PATIENT
  Sex: Male

DRUGS (11)
  1. ZINC [Concomitant]
     Active Substance: ZINC\ZINC CHLORIDE
  2. ATORVASTATIN [Concomitant]
     Active Substance: ATORVASTATIN
     Dosage: 20 MG, QD
  3. OXYCODONE [Concomitant]
     Active Substance: OXYCODONE
  4. VOTRIENT [Suspect]
     Active Substance: PAZOPANIB HYDROCHLORIDE
     Indication: NEOPLASM MALIGNANT
     Dosage: 800 MG, QD
     Dates: start: 201506
  5. ZOFRAN [Suspect]
     Active Substance: ONDANSETRON HYDROCHLORIDE
     Indication: PRODUCT USED FOR UNKNOWN INDICATION
     Dosage: 8 MG, U
  6. MINOCYCLINE [Concomitant]
     Active Substance: MINOCYCLINE\MINOCYCLINE HYDROCHLORIDE
     Dosage: 50 MG, QD
  7. CYCLOBENZAPRINE [Concomitant]
     Active Substance: CYCLOBENZAPRINE
  8. METOPROLOL [Suspect]
     Active Substance: METOPROLOL
     Dosage: 50 MG, QD
  9. VITAMIN B2 [Concomitant]
     Active Substance: RIBOFLAVIN
  10. ASPIRIN. [Concomitant]
     Active Substance: ASPIRIN
  11. OXYMORPHONE [Concomitant]
     Active Substance: OXYMORPHONE

REACTIONS (10)
  - Blood urine present [Unknown]
  - Nausea [Unknown]
  - Vision blurred [Unknown]
  - Fatigue [Unknown]
  - Oesophageal disorder [Unknown]
  - Gastric disorder [Unknown]
  - Weight decreased [Unknown]
  - Blood pressure inadequately controlled [Unknown]
  - Headache [Unknown]
  - Dysgeusia [Unknown]
